FAERS Safety Report 9236778 (Version 1)
Quarter: 2013Q2

REPORT INFORMATION
  Report Type: Spontaneous
  Country: US (occurrence: US)
  Receive Date: 20130416
  Receipt Date: 20130416
  Transmission Date: 20140414
  Serious: Yes (Other)
  Sender: FDA-Public Use
  Company Number: US-CTI_01569_2013

PATIENT
  Sex: Female

DRUGS (1)
  1. ZYFLO CR [Suspect]
     Indication: ASTHMA
     Route: 048
     Dates: start: 2012

REACTIONS (1)
  - Malignant melanoma [Not Recovered/Not Resolved]
